FAERS Safety Report 12632426 (Version 2)
Quarter: 2016Q3

REPORT INFORMATION
  Report Type: Spontaneous
  Country: US (occurrence: US)
  Receive Date: 20160808
  Receipt Date: 20160808
  Transmission Date: 20161109
  Serious: No
  Sender: FDA-Public Use
  Company Number: US-BEH-2016062820

PATIENT
  Sex: Female
  Weight: 63 kg

DRUGS (32)
  1. FISH OIL [Concomitant]
     Active Substance: FISH OIL
  2. HIZENTRA [Suspect]
     Active Substance: HUMAN IMMUNOGLOBULIN G
     Indication: IMMUNODEFICIENCY COMMON VARIABLE
     Route: 058
  3. IBUPROFEN. [Concomitant]
     Active Substance: IBUPROFEN
  4. DIPHENHYDRAMINE. [Concomitant]
     Active Substance: DIPHENHYDRAMINE
  5. AZITHROMYCIN ANHYDROUS. [Concomitant]
     Active Substance: AZITHROMYCIN ANHYDROUS
  6. VALTREX [Concomitant]
     Active Substance: VALACYCLOVIR HYDROCHLORIDE
  7. ROCEPHIN [Concomitant]
     Active Substance: CEFTRIAXONE SODIUM
  8. ADVAIR HFA [Concomitant]
     Active Substance: FLUTICASONE PROPIONATE\SALMETEROL XINAFOATE
  9. AUGMENTIN [Concomitant]
     Active Substance: AMOXICILLIN\CLAVULANATE POTASSIUM
  10. ZOLOFT [Concomitant]
     Active Substance: SERTRALINE HYDROCHLORIDE
  11. MELATONIN [Concomitant]
     Active Substance: MELATONIN
  12. ZYRTEC [Concomitant]
     Active Substance: CETIRIZINE HYDROCHLORIDE
  13. LIDOCAINE/PRILOCAINE [Concomitant]
     Active Substance: LIDOCAINE\PRILOCAINE
  14. COUGH SYRUP [Concomitant]
     Active Substance: DEXTROMETHORPHAN HYDROBROMIDE\GUAIFENESIN
  15. LEVAQUIN [Concomitant]
     Active Substance: LEVOFLOXACIN
  16. FLUCONAZOLE. [Concomitant]
     Active Substance: FLUCONAZOLE
  17. BACLOFEN. [Concomitant]
     Active Substance: BACLOFEN
  18. DILAUDID [Concomitant]
     Active Substance: HYDROMORPHONE HYDROCHLORIDE
  19. AVELOX [Concomitant]
     Active Substance: MOXIFLOXACIN HYDROCHLORIDE
  20. TEMAZEPAM. [Concomitant]
     Active Substance: TEMAZEPAM
  21. LYRICA [Concomitant]
     Active Substance: PREGABALIN
  22. TUSSIONEX PENNKINETIC [Concomitant]
     Active Substance: CHLORPHENIRAMINE\HYDROCODONE
  23. VITAMIN D3 [Concomitant]
     Active Substance: CHOLECALCIFEROL
  24. PRENATAL VITAMINS [Concomitant]
     Active Substance: VITAMINS
  25. PROGESTERONE. [Concomitant]
     Active Substance: PROGESTERONE
  26. VITAMIN C [Concomitant]
     Active Substance: ASCORBIC ACID
  27. POTASSIUM [Concomitant]
     Active Substance: POTASSIUM
  28. NADOLOL. [Concomitant]
     Active Substance: NADOLOL
  29. EPIPEN [Concomitant]
     Active Substance: EPINEPHRINE
  30. CEPHALEXIN. [Concomitant]
     Active Substance: CEPHALEXIN
  31. DOXYCYCLINE. [Concomitant]
     Active Substance: DOXYCYCLINE
  32. SINGULAIR [Concomitant]
     Active Substance: MONTELUKAST SODIUM

REACTIONS (2)
  - Erythema [Unknown]
  - Pruritus [Unknown]
